FAERS Safety Report 8711465 (Version 4)
Quarter: 2013Q2

REPORT INFORMATION
  Report Type: Report from Study
  Country: MX (occurrence: MX)
  Receive Date: 20120807
  Receipt Date: 20130419
  Transmission Date: 20140414
  Serious: Yes (Disabling, Other)
  Sender: FDA-Public Use
  Company Number: MX-ABBOTT-12P-107-0964787-00

PATIENT
  Sex: Male
  Weight: 50 kg

DRUGS (6)
  1. HUMIRA 40 MG/ 0.8 ML PRE-FILLED SYRINGE [Suspect]
     Indication: ANKYLOSING SPONDYLITIS
     Route: 058
     Dates: start: 20100427, end: 20100622
  2. HUMIRA 40 MG/ 0.8 ML PRE-FILLED SYRINGE [Suspect]
     Route: 058
     Dates: start: 20120529, end: 201206
  3. ASULFIDINE [Concomitant]
     Indication: PAIN
     Route: 048
     Dates: start: 20110105
  4. PARACETAMOL [Concomitant]
     Indication: PAIN
     Route: 048
     Dates: start: 201202
  5. TRAMADOL [Concomitant]
     Indication: PAIN
     Route: 048
     Dates: start: 201202
  6. ALLOPURINOL [Concomitant]
     Indication: BLOOD URIC ACID
     Route: 048
     Dates: start: 201202

REACTIONS (5)
  - Chondropathy [Not Recovered/Not Resolved]
  - Gait disturbance [Not Recovered/Not Resolved]
  - Pain [Not Recovered/Not Resolved]
  - Renal failure [Unknown]
  - Weight decreased [Not Recovered/Not Resolved]
